FAERS Safety Report 10582615 (Version 2)
Quarter: 2014Q4

REPORT INFORMATION
  Report Type: Spontaneous
  Country: US (occurrence: US)
  Receive Date: 20141113
  Receipt Date: 20141113
  Transmission Date: 20150529
  Serious: No
  Sender: FDA-Public Use
  Company Number: US-ENDO PHARMACEUTICALS INC.-VALS20130048

PATIENT
  Age: 90 Year
  Sex: Male

DRUGS (1)
  1. VALSTAR [Suspect]
     Active Substance: VALRUBICIN
     Indication: PRODUCT USED FOR UNKNOWN INDICATION
     Route: 043
     Dates: start: 20130903, end: 20130903

REACTIONS (2)
  - Blood urine present [Not Recovered/Not Resolved]
  - Haemorrhage urinary tract [Unknown]

NARRATIVE: CASE EVENT DATE: 201309
